FAERS Safety Report 5931967-8 (Version None)
Quarter: 2008Q4

REPORT INFORMATION
  Report Type: 
  Country: None (occurrence: None)
  Receive Date: 20081027
  Receipt Date: 20081023
  Transmission Date: 20090506
  Serious: Yes (Death)
  Sender: FDA-Public Use
  Company Number: PHHY2008BR25780

PATIENT
  Age: 93 Year
  Sex: Female

DRUGS (1)
  1. EXFORGE [Suspect]

REACTIONS (1)
  - DEATH [None]
